FAERS Safety Report 5641719-4 (Version None)
Quarter: 2008Q1

REPORT INFORMATION
  Report Type: 
  Country: None (occurrence: None)
  Receive Date: 20080227
  Receipt Date: 20080213
  Transmission Date: 20080703
  Serious: Yes (Other)
  Sender: FDA-Public Use
  Company Number: GB-RANBAXY-2008RR-13100

PATIENT

DRUGS (1)
  1. GABAPENTIN BASICS B 600MG FILMTABLETTEN [Suspect]
     Indication: NERVE COMPRESSION
     Dosage: 300 MG, QD
     Route: 065

REACTIONS (1)
  - DRUG RASH WITH EOSINOPHILIA AND SYSTEMIC SYMPTOMS [None]
